FAERS Safety Report 24722348 (Version 1)
Quarter: 2024Q4

REPORT INFORMATION
  Report Type: Spontaneous
  Country: US (occurrence: None)
  Receive Date: 20241210
  Receipt Date: 20241210
  Transmission Date: 20250114
  Serious: No
  Sender: Public
  Company Number: None

PATIENT
  Age: 70 Year
  Sex: Male
  Weight: 227 kg

DRUGS (2)
  1. OXCARBAZEPINE [Suspect]
     Active Substance: OXCARBAZEPINE
  2. DIVALPROEX SODIUM [Suspect]
     Active Substance: DIVALPROEX SODIUM

REACTIONS (8)
  - Lethargy [None]
  - Catatonia [None]
  - Myalgia [None]
  - Myalgia [None]
  - Rash [None]
  - Skin exfoliation [None]
  - Personality change [None]
  - Thrombocytopenia [None]

NARRATIVE: CASE EVENT DATE: 20220311
